FAERS Safety Report 11817863 (Version 6)
Quarter: 2018Q1

REPORT INFORMATION
  Report Type: Spontaneous
  Country: US (occurrence: US)
  Receive Date: 20151210
  Receipt Date: 20180129
  Transmission Date: 20180508
  Serious: Yes (Other)
  Sender: FDA-Public Use
  Company Number: US-JNJFOC-20150614282

PATIENT
  Age: 13 Year
  Sex: Male

DRUGS (8)
  1. RISPERDAL [Suspect]
     Active Substance: RISPERIDONE
     Indication: ANGER
     Route: 048
     Dates: start: 2004, end: 2004
  2. ABILIFY [Concomitant]
     Active Substance: ARIPIPRAZOLE
     Route: 065
     Dates: start: 2004, end: 2005
  3. TRILEPTAL [Concomitant]
     Active Substance: OXCARBAZEPINE
     Dosage: 25MG, 40MG AND 60MG
     Route: 065
     Dates: start: 2003, end: 2005
  4. LAMOTRIGINE. [Concomitant]
     Active Substance: LAMOTRIGINE
     Route: 065
  5. RISPERDAL [Suspect]
     Active Substance: RISPERIDONE
     Indication: ANGER
     Dosage: 0.25-0.50 MG
     Route: 048
     Dates: start: 2002, end: 2004
  6. GEODON [Concomitant]
     Active Substance: ZIPRASIDONE HYDROCHLORIDE\ZIPRASIDONE MESYLATE
     Route: 065
  7. STRATTERA [Concomitant]
     Active Substance: ATOMOXETINE HYDROCHLORIDE
     Dosage: 125MG, 500MG
     Route: 065
     Dates: start: 2002, end: 2004
  8. ARIMIDEX [Concomitant]
     Active Substance: ANASTROZOLE
     Route: 048

REACTIONS (5)
  - Off label use [Unknown]
  - Product use in unapproved indication [Unknown]
  - Obesity [Not Recovered/Not Resolved]
  - Drug ineffective for unapproved indication [Unknown]
  - Gynaecomastia [Not Recovered/Not Resolved]

NARRATIVE: CASE EVENT DATE: 2002
